FAERS Safety Report 4609432-X (Version None)
Quarter: 2005Q1

REPORT INFORMATION
  Report Type: 
  Country: None (occurrence: None)
  Receive Date: 20050314
  Receipt Date: 20050301
  Transmission Date: 20050727
  Serious: Yes (Other)
  Sender: FDA-Public Use
  Company Number: 2005040851

PATIENT
  Age: 11 Year
  Sex: Male

DRUGS (2)
  1. CLINDAMYCIN HYDROCHLORIDE [Suspect]
     Indication: STAPHYLOCOCCAL INFECTION
     Dosage: 21 ML, ORAL
     Route: 048
     Dates: start: 20040902, end: 20040911
  2. CIPROFLOXACIN [Suspect]
     Indication: STAPHYLOCOCCAL INFECTION
     Dosage: 10 ML, ORAL
     Route: 048
     Dates: start: 20040902, end: 20040911

REACTIONS (2)
  - HALLUCINATION [None]
  - SLEEP DISORDER [None]
